FAERS Safety Report 4735193-X (Version None)
Quarter: 2005Q3

REPORT INFORMATION
  Report Type: 
  Country: None (occurrence: None)
  Receive Date: 20050804
  Receipt Date: 20050722
  Transmission Date: 20060218
  Serious: Yes (Hospitalization, Other)
  Sender: FDA-Public Use
  Company Number: 2005105630

PATIENT
  Age: 55 Year
  Sex: Male

DRUGS (6)
  1. CELEBREX [Suspect]
     Indication: PAIN
     Dosage: 400 MG (400 MG, 1 IN 1 D), ORAL
     Route: 048
     Dates: start: 19990101
  2. NEURONTIN [Suspect]
     Indication: CARPAL TUNNEL SYNDROME
     Dosage: ORAL
     Route: 048
  3. MOBIC [Suspect]
     Indication: PAIN
     Dates: start: 20040101, end: 20040101
  4. HYDROCODONE (HYDROCODONE) [Concomitant]
  5. AMBIEN [Concomitant]
  6. LIDODERM PATCH (LIDOCAINE HYDROCHLORIDE) [Concomitant]

REACTIONS (9)
  - BLOOD CHOLESTEROL INCREASED [None]
  - CARDIAC DISORDER [None]
  - CARPAL TUNNEL SYNDROME [None]
  - DRUG INEFFECTIVE [None]
  - DYSPNOEA [None]
  - HYPERHIDROSIS [None]
  - HYPERTENSION [None]
  - HYPOAESTHESIA [None]
  - TREMOR [None]
